FAERS Safety Report 14282480 (Version 1)
Quarter: 2017Q4

REPORT INFORMATION
  Report Type: Spontaneous
  Country: US (occurrence: US)
  Receive Date: 20171213
  Receipt Date: 20171213
  Transmission Date: 20180321
  Serious: Yes (Other)
  Sender: FDA-Public Use
  Company Number: US-MALLINCKRODT-T201700592

PATIENT
  Sex: Female
  Weight: 91 kg

DRUGS (1)
  1. FENTANYL TRANSDERMAL SYSTEM [Suspect]
     Active Substance: FENTANYL
     Indication: PAIN
     Dosage: 75 MCG/HR, Q72HR
     Route: 062
     Dates: start: 2012

REACTIONS (7)
  - Wound complication [Not Recovered/Not Resolved]
  - Application site ulcer [Not Recovered/Not Resolved]
  - Hallucination [Unknown]
  - Skin ulcer [Not Recovered/Not Resolved]
  - Product adhesion issue [Not Recovered/Not Resolved]
  - Lack of administration site rotation [Recovered/Resolved]
  - Wrong technique in product usage process [Not Recovered/Not Resolved]
